FAERS Safety Report 17529025 (Version 1)
Quarter: 2020Q1

REPORT INFORMATION
  Report Type: Spontaneous
  Country: FR (occurrence: FR)
  Receive Date: 20200311
  Receipt Date: 20200311
  Transmission Date: 20200409
  Serious: Yes (Other)
  Sender: FDA-Public Use
  Company Number: FR-MYLANLABS-2020M1025700

PATIENT
  Age: 67 Year
  Sex: Male

DRUGS (1)
  1. MIDAZOLAM MYLAN 5 MG/ML, SOLUTION INJECTABLE (IM-IV) OU RECTALE [Suspect]
     Active Substance: MIDAZOLAM HYDROCHLORIDE
     Indication: PROCEDURAL ANXIETY
     Dosage: 5 MILLIGRAM, TOTAL
     Route: 040
     Dates: start: 20200122

REACTIONS (5)
  - Feeling drunk [Recovered/Resolved]
  - Vomiting [Recovered/Resolved]
  - Product communication issue [Recovered/Resolved]
  - Incorrect dose administered [Recovered/Resolved]
  - Product administration error [Recovered/Resolved]

NARRATIVE: CASE EVENT DATE: 20200122
